FAERS Safety Report 19596616 (Version 5)
Quarter: 2025Q3

REPORT INFORMATION
  Report Type: Report from Study
  Country: US (occurrence: US)
  Receive Date: 20210722
  Receipt Date: 20250717
  Transmission Date: 20251020
  Serious: Yes (Other)
  Sender: TAKEDA
  Company Number: US-TAKEDA-2021TUS044464

PATIENT
  Age: 58 Year
  Sex: Male
  Weight: 87.528 kg

DRUGS (14)
  1. BRIGATINIB [Suspect]
     Active Substance: BRIGATINIB
     Indication: Lung neoplasm malignant
     Dosage: 150 MILLIGRAM, QD
     Dates: start: 20210707
  2. BRIGATINIB [Suspect]
     Active Substance: BRIGATINIB
     Dosage: 150 MILLIGRAM, QD
  3. POTASSIUM CHLORIDE [Concomitant]
     Active Substance: POTASSIUM CHLORIDE
  4. AMBIEN [Concomitant]
     Active Substance: ZOLPIDEM TARTRATE
  5. CLONAZEPAM [Concomitant]
     Active Substance: CLONAZEPAM
  6. NIFEDIPINE [Concomitant]
     Active Substance: NIFEDIPINE
  7. ALBUTEROL SULFATE [Concomitant]
     Active Substance: ALBUTEROL SULFATE
  8. MEDROL [Concomitant]
     Active Substance: METHYLPREDNISOLONE
  9. NAMENDA [Concomitant]
     Active Substance: MEMANTINE HYDROCHLORIDE
  10. NEOSPORIN [Concomitant]
     Active Substance: BACITRACIN ZINC\NEOMYCIN SULFATE\POLYMYXIN B SULFATE
  11. ONDANSETRON [Concomitant]
     Active Substance: ONDANSETRON
  12. SENNA [Concomitant]
     Active Substance: SENNOSIDES
  13. TRIAMCINOLONE [Concomitant]
     Active Substance: TRIAMCINOLONE
  14. XANAX [Concomitant]
     Active Substance: ALPRAZOLAM

REACTIONS (12)
  - Brain neoplasm [Recovered/Resolved]
  - Product dose omission issue [Recovered/Resolved]
  - Weight decreased [Unknown]
  - Photosensitivity reaction [Unknown]
  - Hypertension [Unknown]
  - Oedema [Unknown]
  - Rash maculo-papular [Not Recovered/Not Resolved]
  - Pruritus [Unknown]
  - Decreased appetite [Unknown]
  - Fatigue [Unknown]
  - Taste disorder [Unknown]
  - Incorrect dose administered [Unknown]

NARRATIVE: CASE EVENT DATE: 20210916
